FAERS Safety Report 8612174-7 (Version None)
Quarter: 2012Q3

REPORT INFORMATION
  Report Type: 
  Country: None (occurrence: None)
  Receive Date: 20120813
  Receipt Date: 20120813
  Transmission Date: 20120928
  Serious: No
  Sender: FDA-Public Use
  Company Number: None

PATIENT
  Sex: Male
  Weight: 87.5442 kg

DRUGS (1)
  1. WELLBUTRIN XL [Suspect]
     Indication: DYSTHYMIC DISORDER
     Dosage: 1 X DAILY

REACTIONS (3)
  - UNEVALUABLE EVENT [None]
  - PRODUCT SUBSTITUTION ISSUE [None]
  - DRUG EFFECT DECREASED [None]
